FAERS Safety Report 11328351 (Version 3)
Quarter: 2019Q3

REPORT INFORMATION
  Report Type: Spontaneous
  Country: US (occurrence: US)
  Receive Date: 20150731
  Receipt Date: 20190729
  Transmission Date: 20191004
  Serious: No
  Sender: FDA-Public Use
  Company Number: US-ABBVIE-15P-163-1348829-00

PATIENT
  Sex: Male

DRUGS (1)
  1. NIASPAN ER [Suspect]
     Active Substance: NIACIN
     Indication: PRODUCT USED FOR UNKNOWN INDICATION
     Route: 048

REACTIONS (2)
  - Myalgia [Unknown]
  - Drug hypersensitivity [Unknown]
